FAERS Safety Report 7022864-8 (Version None)
Quarter: 2010Q3

REPORT INFORMATION
  Report Type: 
  Country: None (occurrence: None)
  Receive Date: 20100930
  Receipt Date: 20100923
  Transmission Date: 20110219
  Serious: Yes (Death, Life-Threatening, Hospitalization)
  Sender: FDA-Public Use
  Company Number: CA-MERCK-1009USA04959

PATIENT
  Age: 71 Year
  Sex: Female
  Weight: 80 kg

DRUGS (3)
  1. ZOCOR [Suspect]
     Route: 048
  2. COVERSYL (PERINDOPRIL ARGININE) [Concomitant]
     Route: 048
  3. ZETIA [Concomitant]
     Route: 048

REACTIONS (14)
  - ABASIA [None]
  - AUTOIMMUNE DISORDER [None]
  - CEREBRAL HAEMORRHAGE [None]
  - CHROMATURIA [None]
  - DECREASED APPETITE [None]
  - DIZZINESS [None]
  - ELECTROLYTE IMBALANCE [None]
  - MOVEMENT DISORDER [None]
  - MUSCULAR WEAKNESS [None]
  - MYOPATHY [None]
  - NAUSEA [None]
  - RENAL DISORDER [None]
  - RETCHING [None]
  - VASCULITIS NECROTISING [None]
